FAERS Safety Report 10046590 (Version 2)
Quarter: 2014Q2

REPORT INFORMATION
  Report Type: Spontaneous
  Country: US (occurrence: US)
  Receive Date: 20140331
  Receipt Date: 20140501
  Transmission Date: 20141212
  Serious: No
  Sender: FDA-Public Use
  Company Number: US-BIOGENIDEC-2014BI028461

PATIENT
  Age: 66 Year
  Sex: Female

DRUGS (8)
  1. TECFIDERA [Suspect]
     Indication: MULTIPLE SCLEROSIS
     Route: 048
     Dates: start: 201306
  2. AMANTADINE HCL [Concomitant]
  3. CITALOPRAM HYDROBROMIDE [Concomitant]
  4. CLONAZEPAM [Concomitant]
  5. OMEPRAZOLE [Concomitant]
  6. SIMVASTATIN [Concomitant]
  7. TRAZODONE HCL [Concomitant]
  8. WARFARIN SODIUM [Concomitant]

REACTIONS (1)
  - Transient ischaemic attack [Unknown]
